FAERS Safety Report 7112687-3 (Version None)
Quarter: 2010Q4

REPORT INFORMATION
  Report Type: 
  Country: None (occurrence: None)
  Receive Date: 20101119
  Receipt Date: 20101108
  Transmission Date: 20110411
  Serious: Yes (Hospitalization)
  Sender: FDA-Public Use
  Company Number: PHFR2010GB01554

PATIENT
  Sex: Male

DRUGS (2)
  1. CLOZARIL [Suspect]
     Dosage: UNK
     Route: 048
     Dates: start: 20080225
  2. CLOZARIL [Suspect]
     Dosage: UNK
     Route: 048

REACTIONS (2)
  - HYPOREFLEXIA [None]
  - PNEUMONIA [None]
